FAERS Safety Report 5083709-9 (Version None)
Quarter: 2006Q3

REPORT INFORMATION
  Report Type: 
  Country: None (occurrence: None)
  Receive Date: 20060818
  Receipt Date: 20060127
  Transmission Date: 20061208
  Serious: Yes (Disabling)
  Sender: FDA-Public Use
  Company Number: US-ROCHE-434151

PATIENT
  Age: 19 Year
  Sex: Male
  Weight: 140 kg

DRUGS (2)
  1. ACCUTANE [Suspect]
     Indication: ACNE
     Route: 048
     Dates: start: 20030116, end: 20030228
  2. ACCUTANE [Suspect]
     Route: 048
     Dates: start: 20030228

REACTIONS (41)
  - ABDOMINAL PAIN [None]
  - ABDOMINAL PAIN UPPER [None]
  - ANXIETY [None]
  - ARTHRITIS [None]
  - ATTENTION DEFICIT/HYPERACTIVITY DISORDER [None]
  - BONE DISORDER [None]
  - BOWEL MOVEMENT IRREGULARITY [None]
  - COLONIC POLYP [None]
  - CROHN'S DISEASE [None]
  - DECREASED APPETITE [None]
  - DEPRESSED MOOD [None]
  - DEPRESSION [None]
  - DIARRHOEA [None]
  - DISTURBANCE IN ATTENTION [None]
  - DIZZINESS [None]
  - EPSTEIN-BARR VIRUS ANTIBODY POSITIVE [None]
  - FATIGUE [None]
  - FRACTURE [None]
  - GASTROINTESTINAL INJURY [None]
  - HAEMATOCHEZIA [None]
  - HAEMORRHAGE [None]
  - HEADACHE [None]
  - INFLAMMATION [None]
  - INFLAMMATORY BOWEL DISEASE [None]
  - INSOMNIA [None]
  - IRRITABILITY [None]
  - MENTAL IMPAIRMENT [None]
  - NAUSEA [None]
  - OBSESSIVE-COMPULSIVE DISORDER [None]
  - PANIC ATTACK [None]
  - PERFORMANCE FEAR [None]
  - PHARYNGITIS [None]
  - PHOBIA [None]
  - PILONIDAL CYST [None]
  - POST-TRAUMATIC STRESS DISORDER [None]
  - RECTAL HAEMORRHAGE [None]
  - RESTLESSNESS [None]
  - SELF ESTEEM DECREASED [None]
  - TEMPOROMANDIBULAR JOINT SYNDROME [None]
  - VOMITING [None]
  - WEIGHT DECREASED [None]
